FAERS Safety Report 17975263 (Version 1)
Quarter: 2020Q3

REPORT INFORMATION
  Report Type: Spontaneous
  Country: JP (occurrence: JP)
  Receive Date: 20200702
  Receipt Date: 20200702
  Transmission Date: 20201103
  Serious: Yes (Other)
  Sender: FDA-Public Use
  Company Number: JP-BAYER-2020-131412

PATIENT
  Sex: Female

DRUGS (1)
  1. YAZ [Suspect]
     Active Substance: DROSPIRENONE\ETHINYL ESTRADIOL
     Dosage: UNK
     Route: 048
     Dates: start: 20200619

REACTIONS (4)
  - Palpitations [None]
  - Decreased appetite [None]
  - Abdominal pain upper [None]
  - Heart rate irregular [None]

NARRATIVE: CASE EVENT DATE: 20200627
